FAERS Safety Report 4810579-3 (Version None)
Quarter: 2005Q4

REPORT INFORMATION
  Report Type: 
  Country: None (occurrence: None)
  Receive Date: 20051024
  Receipt Date: 20051004
  Transmission Date: 20060501
  Serious: Yes (Hospitalization)
  Sender: FDA-Public Use
  Company Number: JP_051007790

PATIENT
  Age: 26 Year
  Sex: Female

DRUGS (2)
  1. ZYPREXA [Suspect]
     Indication: SCHIZOPHRENIA
     Dosage: 30 MG DAY
     Dates: start: 20050927, end: 20051004
  2. ROHYPNOL (FLUNITRAZEPAM) [Concomitant]

REACTIONS (2)
  - LEUKOPENIA [None]
  - PRESCRIBED OVERDOSE [None]
